FAERS Safety Report 26071677 (Version 1)
Quarter: 2025Q4

REPORT INFORMATION
  Report Type: Report from Study
  Country: AU (occurrence: AU)
  Receive Date: 20251120
  Receipt Date: 20251120
  Transmission Date: 20260118
  Serious: Yes (Other)
  Sender: MERCK SHARP & DOHME LLC
  Company Number: AU-009507513-2348754

PATIENT
  Age: 76 Year
  Sex: Female

DRUGS (1)
  1. KEYTRUDA [Suspect]
     Active Substance: PEMBROLIZUMAB
     Dates: start: 20251013

REACTIONS (2)
  - Radiotherapy [Unknown]
  - Inappropriate schedule of product administration [Unknown]
